FAERS Safety Report 6309474-2 (Version None)
Quarter: 2009Q3

REPORT INFORMATION
  Report Type: 
  Country: None (occurrence: None)
  Receive Date: 20090814
  Receipt Date: 20090513
  Transmission Date: 20100115
  Serious: No
  Sender: FDA-Public Use
  Company Number: US-BAYER-200920792NA

PATIENT
  Age: 20 Year
  Sex: Female

DRUGS (2)
  1. MIRENA [Suspect]
     Indication: CONTRACEPTION
     Dosage: CONTINUOUS
     Route: 015
     Dates: start: 20090508
  2. ALBUTEROL [Concomitant]

REACTIONS (4)
  - HERPES VIRUS INFECTION [None]
  - MIGRAINE [None]
  - PYREXIA [None]
  - VAGINAL LESION [None]
